FAERS Safety Report 18801691 (Version 1)
Quarter: 2021Q1

REPORT INFORMATION
  Report Type: Spontaneous
  Country: DE (occurrence: DE)
  Receive Date: 20210128
  Receipt Date: 20210128
  Transmission Date: 20210419
  Serious: Yes (Hospitalization)
  Sender: FDA-Public Use
  Company Number: DE-TEVA-2021-DE-1873022

PATIENT
  Age: 76 Year
  Sex: Female

DRUGS (5)
  1. AMLODIPIN [Suspect]
     Active Substance: AMLODIPINE BESYLATE
     Dosage: 10 MILLIGRAM DAILY; 1?0?1?0
  2. ARLEVERT 20MG/40MG [Concomitant]
     Dosage: 1 DOSAGE FORMS DAILY; 20|40 MG, 1?0?0?0
  3. SULPIRID [Suspect]
     Active Substance: SULPIRIDE
     Dosage: 50 MILLIGRAM DAILY; 1?0?0?0
  4. METOPROLOL. [Concomitant]
     Active Substance: METOPROLOL
     Dosage: 100 MILLIGRAM DAILY; 1?0?0?0, SUSTAINED?RELEASE TABLETS
  5. CANDESARTAN CILEXETIL AND HYDROCHLOROTHIAZIDE [Concomitant]
     Active Substance: CANDESARTAN CILEXETIL\HYDROCHLOROTHIAZIDE
     Dosage: 2 DOSAGE FORMS DAILY; 16 | 12.5 MG, 1?0?1?0

REACTIONS (3)
  - Palpitations [Unknown]
  - Dyspnoea exertional [Unknown]
  - Tachycardia [Unknown]
